FAERS Safety Report 15371218 (Version 1)
Quarter: 2018Q3

REPORT INFORMATION
  Report Type: Report from Study
  Country: CA (occurrence: CA)
  Receive Date: 20180911
  Receipt Date: 20180911
  Transmission Date: 20181010
  Serious: Yes (Other)
  Sender: FDA-Public Use
  Company Number: CA-GLAXOSMITHKLINE-CA2018GSK145664

PATIENT
  Age: 67 Year
  Sex: Male

DRUGS (1)
  1. SALBUTAMOL SULPHATE [Suspect]
     Active Substance: ALBUTEROL SULFATE
     Indication: PRODUCT USED FOR UNKNOWN INDICATION
     Dosage: 3 PUFF(S), UNK

REACTIONS (5)
  - Eosinophilia [Unknown]
  - Sputum increased [Unknown]
  - Reversible airways obstruction [Unknown]
  - Blood test abnormal [Unknown]
  - Cough [Unknown]

NARRATIVE: CASE EVENT DATE: 20180516
